FAERS Safety Report 9000189 (Version 1)
Quarter: 2013Q1

REPORT INFORMATION
  Report Type: Spontaneous
  Country: CH (occurrence: CH)
  Receive Date: 20130102
  Receipt Date: 20130102
  Transmission Date: 20140127
  Serious: Yes (Life-Threatening, Hospitalization)
  Sender: FDA-Public Use
  Company Number: CH-SANOFI-AVENTIS-2012SA095627

PATIENT
  Age: 90 Year
  Sex: Female

DRUGS (19)
  1. ZOLPIDEM [Suspect]
     Indication: PRODUCT USED FOR UNKNOWN INDICATION
     Route: 065
  2. FLAGYL [Suspect]
     Indication: PRODUCT USED FOR UNKNOWN INDICATION
     Route: 065
     Dates: start: 20121205, end: 20121209
  3. ZALDIAR [Suspect]
     Indication: PAIN
     Route: 048
     Dates: end: 20121204
  4. PARACETAMOL [Suspect]
     Indication: PAIN
     Route: 048
     Dates: start: 20121204, end: 20121209
  5. ROCEPHIN [Suspect]
     Indication: PRODUCT USED FOR UNKNOWN INDICATION
     Route: 065
     Dates: start: 20121205, end: 20121209
  6. XARELTO [Suspect]
     Indication: PRODUCT USED FOR UNKNOWN INDICATION
     Route: 065
     Dates: start: 20121207, end: 20121209
  7. AMLODIPINE [Suspect]
     Indication: PRODUCT USED FOR UNKNOWN INDICATION
     Route: 065
     Dates: end: 20121208
  8. ESOMEPRAZOLE [Suspect]
     Indication: PRODUCT USED FOR UNKNOWN INDICATION
     Route: 065
     Dates: start: 20121205, end: 20121209
  9. GALANTAMINE HYDROBROMIDE [Suspect]
     Indication: PRODUCT USED FOR UNKNOWN INDICATION
     Route: 065
     Dates: end: 20121211
  10. INEGY [Suspect]
     Indication: PRODUCT USED FOR UNKNOWN INDICATION
     Route: 065
     Dates: end: 20121208
  11. ESCITALOPRAM [Suspect]
     Indication: PRODUCT USED FOR UNKNOWN INDICATION
     Route: 065
     Dates: end: 20121206
  12. CALCIPARIN [Concomitant]
     Dates: start: 20121205, end: 20121209
  13. OMEPRAZOLE [Concomitant]
  14. IBUPROFEN [Concomitant]
  15. CALCIMAGON-D3 [Concomitant]
  16. PREDNISOLONE [Concomitant]
  17. ASA [Concomitant]
     Indication: HEADACHE
     Dates: start: 20121204
  18. HEPARIN [Concomitant]
     Dates: end: 20121207
  19. PREDNISONE [Concomitant]
     Indication: POLYMYALGIA RHEUMATICA

REACTIONS (1)
  - Hepatocellular injury [Not Recovered/Not Resolved]
